FAERS Safety Report 24238721 (Version 2)
Quarter: 2024Q3

REPORT INFORMATION
  Report Type: Spontaneous
  Country: US (occurrence: US)
  Receive Date: 20240822
  Receipt Date: 20240906
  Transmission Date: 20241017
  Serious: No
  Sender: PFIZER
  Company Number: US-PFIZER INC-202400239328

PATIENT
  Age: 81 Year
  Sex: Male
  Weight: 81.633 kg

DRUGS (2)
  1. BRAFTOVI [Suspect]
     Active Substance: ENCORAFENIB
     Indication: Lung neoplasm malignant
     Dosage: 450 MG, 1X/DAY
     Route: 048
     Dates: start: 202405
  2. MEKTOVI [Suspect]
     Active Substance: BINIMETINIB
     Indication: Lung neoplasm malignant
     Dosage: 45 MG, 2X/DAY
     Route: 048
     Dates: start: 202405

REACTIONS (1)
  - Thyroglobulin increased [Unknown]

NARRATIVE: CASE EVENT DATE: 20240701
